FAERS Safety Report 8833185 (Version 2)
Quarter: 2012Q4

REPORT INFORMATION
  Report Type: 
  Country: US (occurrence: US)
  Receive Date: 20121010
  Receipt Date: 20121108
  Transmission Date: 20130627
  Serious: Yes (Other)
  Sender: FDA-Public Use
  Company Number: US-JNJFOC-20121002287

PATIENT
  Sex: Female

DRUGS (5)
  1. FLEXERIL [Suspect]
     Indication: MUSCLE SPASMS
     Route: 048
     Dates: start: 1992, end: 1993
  2. FLEXERIL [Suspect]
     Indication: MUSCLE SPASMS
     Dosage: bed time
     Route: 048
     Dates: start: 2012
  3. FLEXERIL [Suspect]
     Indication: MUSCLE SPASMS
     Dosage: bed time
     Route: 048
     Dates: start: 2012, end: 2012
  4. FLEXERIL [Suspect]
     Indication: MUSCLE SPASMS
     Dosage: bed time
     Route: 048
     Dates: start: 2012, end: 2012
  5. GLEEVEC [Suspect]
     Indication: CHRONIC LEUKAEMIA
     Route: 065
     Dates: start: 1993

REACTIONS (7)
  - Chronic leukaemia [Not Recovered/Not Resolved]
  - Muscle spasms [Not Recovered/Not Resolved]
  - Wrong technique in drug usage process [Unknown]
  - Somnolence [Not Recovered/Not Resolved]
  - Expired drug administered [Unknown]
  - Insomnia [Not Recovered/Not Resolved]
  - Inflammation [Unknown]
